FAERS Safety Report 15266781 (Version 1)
Quarter: 2018Q3

REPORT INFORMATION
  Report Type: Spontaneous
  Country: NL (occurrence: NL)
  Receive Date: 20180810
  Receipt Date: 20180810
  Transmission Date: 20181010
  Serious: Yes (Disabling, Other)
  Sender: FDA-Public Use
  Company Number: NL-ABBVIE-18P-114-2259172-00

PATIENT
  Age: 55 Year
  Sex: Female

DRUGS (6)
  1. NEBIDO [Suspect]
     Active Substance: TESTOSTERONE UNDECANOATE
     Indication: TRANSGENDER HORMONAL THERAPY
     Route: 048
     Dates: start: 20110101
  2. ESOMEPRAZOLE [Concomitant]
     Active Substance: ESOMEPRAZOLE
     Indication: PRODUCT USED FOR UNKNOWN INDICATION
     Route: 065
  3. TESTOSTERONE. [Suspect]
     Active Substance: TESTOSTERONE
     Route: 065
  4. TESTOSTERONE. [Suspect]
     Active Substance: TESTOSTERONE
     Indication: TRANSGENDER HORMONAL THERAPY
     Route: 065
  5. TESTOSTERONE. [Suspect]
     Active Substance: TESTOSTERONE
     Indication: TRANSGENDER HORMONAL THERAPY
     Route: 065
  6. TESTOSTERONE. [Suspect]
     Active Substance: TESTOSTERONE
     Route: 065

REACTIONS (3)
  - Product use issue [Unknown]
  - Product use in unapproved indication [Unknown]
  - Polycythaemia [Unknown]

NARRATIVE: CASE EVENT DATE: 1998
